FAERS Safety Report 5291786-5 (Version None)
Quarter: 2007Q2

REPORT INFORMATION
  Report Type: 
  Country: None (occurrence: None)
  Receive Date: 20070406
  Receipt Date: 20070406
  Transmission Date: 20071010
  Serious: Yes (Other)
  Sender: FDA-Public Use
  Company Number: None

PATIENT
  Age: 69 Year
  Sex: Male
  Weight: 87.0906 kg

DRUGS (1)
  1. CEFUROXIME AXETIL [Suspect]
     Indication: BRONCHIECTASIS
     Dosage: ONE TABLET   TWICE A DAY  PO
     Route: 048
     Dates: start: 20070401, end: 20070402

REACTIONS (2)
  - DYSGEUSIA [None]
  - PHARMACEUTICAL PRODUCT COMPLAINT [None]
